FAERS Safety Report 6155268-0 (Version None)
Quarter: 2009Q2

REPORT INFORMATION
  Report Type: 
  Country: None (occurrence: None)
  Receive Date: 20090410
  Receipt Date: 20090410
  Transmission Date: 20091009
  Serious: Yes (Hospitalization)
  Sender: FDA-Public Use
  Company Number: None

PATIENT
  Sex: Female
  Weight: 68.0396 kg

DRUGS (1)
  1. TRIMETHOPRIM-SULFAMETHOXAZOLE [Suspect]
     Indication: INFECTION PROPHYLAXIS
     Dosage: 1 TABLET TWICE A DAY PO
     Route: 048
     Dates: start: 20090316, end: 20090323

REACTIONS (4)
  - ABASIA [None]
  - PARALYSIS [None]
  - PRODUCT QUALITY ISSUE [None]
  - TENDON PAIN [None]
